FAERS Safety Report 5236422-9 (Version None)
Quarter: 2007Q1

REPORT INFORMATION
  Report Type: 
  Country: None (occurrence: None)
  Receive Date: 20070208
  Receipt Date: 20070130
  Transmission Date: 20070707
  Serious: Yes (Death)
  Sender: FDA-Public Use
  Company Number: GXKR2007GB01311

PATIENT
  Age: 63 Year
  Sex: Male

DRUGS (2)
  1. AZATHIOPRINE [Suspect]
     Indication: LIVER TRANSPLANT
     Dates: end: 20060201
  2. CYCLOSPORINE [Suspect]
     Indication: LIVER TRANSPLANT

REACTIONS (7)
  - FUNGAL INFECTION [None]
  - HEPATORENAL FAILURE [None]
  - LYMPHADENOPATHY [None]
  - METASTASES TO LIVER [None]
  - NEUROENDOCRINE CARCINOMA OF THE SKIN [None]
  - SKIN DISORDER [None]
  - SKIN EXFOLIATION [None]
